FAERS Safety Report 6118072-5 (Version None)
Quarter: 2009Q1

REPORT INFORMATION
  Report Type: 
  Country: None (occurrence: None)
  Receive Date: 20090314
  Receipt Date: 20090209
  Transmission Date: 20090719
  Serious: No
  Sender: FDA-Public Use
  Company Number: US-ABBOTT-09P-163-0502615-00

PATIENT
  Sex: Female
  Weight: 52.21 kg

DRUGS (9)
  1. HUMIRA [Suspect]
     Indication: RHEUMATOID ARTHRITIS
     Route: 058
     Dates: start: 20050101, end: 20080101
  2. HUMIRA [Suspect]
     Route: 058
     Dates: start: 20080101
  3. PREDNISONE [Concomitant]
     Indication: RHEUMATOID ARTHRITIS
  4. NAPROXEN [Concomitant]
     Indication: RHEUMATOID ARTHRITIS
  5. CYPROHEPTADINE HCL [Concomitant]
     Indication: RHEUMATOID ARTHRITIS
  6. OXYCONTIN [Concomitant]
     Indication: RHEUMATOID ARTHRITIS
  7. PERCOCET [Concomitant]
     Indication: RHEUMATOID ARTHRITIS
  8. LEXAPRO [Concomitant]
     Indication: DEPRESSION
  9. RESTORIL [Concomitant]
     Indication: SLEEP DISORDER

REACTIONS (7)
  - ABASIA [None]
  - DRUG EFFECT DECREASED [None]
  - FEELING ABNORMAL [None]
  - JOINT RANGE OF MOTION DECREASED [None]
  - PAIN [None]
  - RHEUMATOID ARTHRITIS [None]
  - SWELLING [None]
